FAERS Safety Report 8364385-6 (Version None)
Quarter: 2012Q2

REPORT INFORMATION
  Report Type: 
  Country: None (occurrence: None)
  Receive Date: 20120516
  Receipt Date: 20120206
  Transmission Date: 20120825
  Serious: Yes (Disabling, Other)
  Sender: FDA-Public Use
  Company Number: PHHY2012CA037429

PATIENT
  Sex: Male

DRUGS (2)
  1. GLEEVEC [Suspect]
     Indication: CHRONIC MYELOID LEUKAEMIA
  2. SPRYCEL [Concomitant]

REACTIONS (5)
  - POLYNEUROPATHY [None]
  - WALKING DISABILITY [None]
  - DRUG INTOLERANCE [None]
  - PERIPHERAL COLDNESS [None]
  - PAIN IN EXTREMITY [None]
